FAERS Safety Report 14475180 (Version 4)
Quarter: 2018Q2

REPORT INFORMATION
  Report Type: Spontaneous
  Country: CA (occurrence: CA)
  Receive Date: 20180201
  Receipt Date: 20180515
  Transmission Date: 20180711
  Serious: Yes (Disabling, Other)
  Sender: FDA-Public Use
  Company Number: CA-ABBVIE-18K-028-2236971-00

PATIENT
  Age: 61 Year
  Sex: Male

DRUGS (9)
  1. HUMIRA [Suspect]
     Active Substance: ADALIMUMAB
     Indication: RHEUMATOID ARTHRITIS
     Route: 058
     Dates: start: 200609, end: 2007
  2. RITUXAN [Suspect]
     Active Substance: RITUXIMAB
     Indication: RHEUMATOID ARTHRITIS
     Route: 065
  3. ORENCIA [Suspect]
     Active Substance: ABATACEPT
     Indication: RHEUMATOID ARTHRITIS
     Route: 065
  4. PREDNISONE. [Concomitant]
     Active Substance: PREDNISONE
     Indication: RHEUMATOID ARTHRITIS
  5. ARAVA [Suspect]
     Active Substance: LEFLUNOMIDE
     Indication: RHEUMATOID ARTHRITIS
     Route: 065
  6. REMICADE [Suspect]
     Active Substance: INFLIXIMAB
     Indication: RHEUMATOID ARTHRITIS
     Dosage: RECEIVED 5 INFUSIONS
     Route: 042
  7. METHOTREXATE SODIUM. [Suspect]
     Active Substance: METHOTREXATE SODIUM
     Indication: RHEUMATOID ARTHRITIS
     Route: 058
     Dates: start: 2001
  8. XELJANZ [Concomitant]
     Active Substance: TOFACITINIB CITRATE
     Indication: PRODUCT USED FOR UNKNOWN INDICATION
  9. ENBREL [Suspect]
     Active Substance: ETANERCEPT
     Indication: RHEUMATOID ARTHRITIS
     Route: 065

REACTIONS (22)
  - Disability [Not Recovered/Not Resolved]
  - Dislocation of vertebra [Unknown]
  - Atlantoaxial instability [Unknown]
  - Drug ineffective [Unknown]
  - Weight increased [Unknown]
  - Intervertebral disc space narrowing [Unknown]
  - Rash [Unknown]
  - Tooth fracture [Recovered/Resolved]
  - Headache [Unknown]
  - Surgery [Unknown]
  - Malaise [Unknown]
  - Osteoarthritis [Not Recovered/Not Resolved]
  - Spinal instability [Unknown]
  - Hyperhidrosis [Unknown]
  - Osteosclerosis [Unknown]
  - Arthralgia [Unknown]
  - Sarcoidosis [Unknown]
  - Mineral metabolism disorder [Unknown]
  - Musculoskeletal stiffness [Unknown]
  - Tooth extraction [Recovered/Resolved]
  - Chondropathy [Not Recovered/Not Resolved]
  - Joint swelling [Unknown]

NARRATIVE: CASE EVENT DATE: 20180118
